FAERS Safety Report 24982507 (Version 1)
Quarter: 2025Q1

REPORT INFORMATION
  Report Type: Spontaneous
  Country: US (occurrence: US)
  Receive Date: 20250218
  Receipt Date: 20250218
  Transmission Date: 20250408
  Serious: Yes (Other)
  Sender: PFIZER
  Company Number: US-PFIZER INC-202500033429

PATIENT
  Age: 52 Year
  Sex: Female
  Weight: 72.57 kg

DRUGS (3)
  1. LORBRENA [Suspect]
     Active Substance: LORLATINIB
     Indication: Non-small cell lung cancer stage IV
     Dates: start: 202410
  2. LORBRENA [Suspect]
     Active Substance: LORLATINIB
     Dates: start: 202411, end: 20250109
  3. LORBRENA [Suspect]
     Active Substance: LORLATINIB
     Dosage: TAKES TWO 25MG TABLETS TO MAKE 50MG ONE TIME A DAY, BY MOUTH
     Route: 048
     Dates: start: 20250207

REACTIONS (9)
  - Neuropathy peripheral [Not Recovered/Not Resolved]
  - Blood cholesterol increased [Not Recovered/Not Resolved]
  - Neoplasm progression [Unknown]
  - Lymphatic disorder [Unknown]
  - Lymphadenopathy [Unknown]
  - Weight increased [Unknown]
  - Blood triglycerides decreased [Unknown]
  - White blood cell count decreased [Unknown]
  - Off label use [Unknown]

NARRATIVE: CASE EVENT DATE: 20240101
